FAERS Safety Report 14011316 (Version 1)
Quarter: 2017Q3

REPORT INFORMATION
  Report Type: Spontaneous
  Country: FR (occurrence: FR)
  Receive Date: 20170926
  Receipt Date: 20170926
  Transmission Date: 20171128
  Serious: Yes (Other)
  Sender: FDA-Public Use
  Company Number: FR-UCBSA-2017038053

PATIENT
  Age: 47 Year
  Sex: Female

DRUGS (1)
  1. NEUPRO [Suspect]
     Active Substance: ROTIGOTINE
     Indication: RESTLESS LEGS SYNDROME
     Dosage: UNK
     Route: 003
     Dates: start: 20170720, end: 20170808

REACTIONS (7)
  - Nausea [Recovering/Resolving]
  - Migraine with aura [Recovering/Resolving]
  - Compulsive shopping [Recovering/Resolving]
  - Kleptomania [Recovering/Resolving]
  - Eating disorder [Recovering/Resolving]
  - Anger [Recovering/Resolving]
  - Vertigo [Recovering/Resolving]

NARRATIVE: CASE EVENT DATE: 2017
